FAERS Safety Report 10101790 (Version 1)
Quarter: 2014Q2

REPORT INFORMATION
  Report Type: Spontaneous
  Country: AU (occurrence: None)
  Receive Date: 20140422
  Receipt Date: 20140422
  Transmission Date: 20141212
  Serious: Yes (Hospitalization)
  Sender: FDA-Public Use
  Company Number: 2014P1003172

PATIENT
  Age: 90 Year
  Sex: Female

DRUGS (1)
  1. TRIMETHOPRIM [Suspect]
     Indication: ESCHERICHIA INFECTION
     Dosage: 300 MG; QD; 4 DAYS

REACTIONS (4)
  - Delirium [None]
  - Nausea [None]
  - Vomiting [None]
  - Hyponatraemia [None]
